FAERS Safety Report 18951679 (Version 1)
Quarter: 2021Q1

REPORT INFORMATION
  Report Type: Spontaneous
  Country: DE (occurrence: DE)
  Receive Date: 20210301
  Receipt Date: 20210301
  Transmission Date: 20210420
  Serious: Yes (Hospitalization)
  Sender: FDA-Public Use
  Company Number: DE-B.I. PHARMACEUTICALS,INC./RIDGEFIELD-2021-BI-085015

PATIENT
  Age: 70 Year
  Sex: Male

DRUGS (1)
  1. JARDIANCE [Suspect]
     Active Substance: EMPAGLIFLOZIN
     Indication: TYPE 2 DIABETES MELLITUS
     Dosage: DAILY DOSE: 35 MG MILLGRAM(S) EVERY DAYS
     Route: 048

REACTIONS (1)
  - Metabolic acidosis [Not Recovered/Not Resolved]

NARRATIVE: CASE EVENT DATE: 20201219
